FAERS Safety Report 8794906 (Version 2)
Quarter: 2013Q4

REPORT INFORMATION
  Report Type: Spontaneous
  Country: US (occurrence: US)
  Receive Date: 20120917
  Receipt Date: 20131031
  Transmission Date: 20140711
  Serious: Yes (Hospitalization)
  Sender: FDA-Public Use
  Company Number: US-009507513-1209USA003592

PATIENT
  Sex: Female

DRUGS (5)
  1. ISENTRESS [Suspect]
     Dosage: UNK
     Route: 048
  2. ATRIPLA [Suspect]
     Dosage: UNK
     Route: 048
  3. VIRAMUNE [Suspect]
     Dosage: UNK
     Route: 048
  4. TRUVADA [Suspect]
     Dosage: UNK
     Route: 048
  5. TRUVADA [Suspect]
     Dosage: UNK

REACTIONS (4)
  - Skin exfoliation [Unknown]
  - Dermatitis exfoliative [Unknown]
  - Pruritus [Unknown]
  - Rash [Unknown]
